FAERS Safety Report 8531013-6 (Version None)
Quarter: 2012Q3

REPORT INFORMATION
  Report Type: 
  Country: None (occurrence: None)
  Receive Date: 20120710
  Receipt Date: 20120530
  Transmission Date: 20120928
  Serious: Yes (Hospitalization)
  Sender: FDA-Public Use
  Company Number: 12-500

PATIENT
  Age: 52 Year
  Sex: Female
  Weight: 55 kg

DRUGS (2)
  1. FLUPIRTINE MALEATE [Suspect]
     Indication: BACK PAIN
     Dosage: 1 DF, QD, ORAL
     Route: 048
     Dates: start: 20110701, end: 20111020
  2. IBUPROFEN [Suspect]
     Indication: BACK PAIN
     Dosage: 1800 MG, PRN, ORAL
     Route: 048
     Dates: start: 20110701, end: 20111020

REACTIONS (5)
  - HEPATIC CIRRHOSIS [None]
  - HEPATIC NECROSIS [None]
  - CHOLESTASIS [None]
  - TOXICITY TO VARIOUS AGENTS [None]
  - SEROLOGY POSITIVE [None]
